FAERS Safety Report 6216097-2 (Version None)
Quarter: 2009Q2

REPORT INFORMATION
  Report Type: 
  Country: None (occurrence: None)
  Receive Date: 20090605
  Receipt Date: 20090601
  Transmission Date: 20091009
  Serious: Yes (Other)
  Sender: FDA-Public Use
  Company Number: CA-ROXANE LABORATORIES, INC.-2009-RO-00546RO

PATIENT
  Age: 45 Year
  Sex: Female

DRUGS (6)
  1. PREDNISONE [Suspect]
     Indication: DEAFNESS
     Dosage: 60MG
  2. SERTRALINE HCL [Suspect]
     Indication: DEPRESSION
  3. GENERIC ACETAMINOPHEN 1 [Suspect]
     Indication: BACK PAIN
  4. GENERIC ACETAMINOPHEN 1 [Suspect]
  5. OXYCODONE [Suspect]
  6. 5-AMINOSALICYLIC ACID [Suspect]
     Indication: COLITIS ULCERATIVE

REACTIONS (8)
  - BALANCE DISORDER [None]
  - DEAFNESS NEUROSENSORY [None]
  - DRUG ABUSE [None]
  - DRUG DEPENDENCE [None]
  - DRUG INEFFECTIVE [None]
  - LIVER DISORDER [None]
  - RENAL DISORDER [None]
  - TINNITUS [None]
